FAERS Safety Report 4418743-2 (Version None)
Quarter: 2004Q3

REPORT INFORMATION
  Report Type: 
  Country: None (occurrence: None)
  Receive Date: 20040809
  Receipt Date: 20040107
  Transmission Date: 20050211
  Serious: No
  Sender: FDA-Public Use
  Company Number: US-GLAXOSMITHKLINE-A0491910A

PATIENT
  Age: 33 Year
  Sex: Female

DRUGS (4)
  1. PAXIL [Suspect]
     Indication: DEPRESSION
     Dosage: 30MG PER DAY
     Route: 048
     Dates: end: 20031204
  2. LEXAPRO [Suspect]
     Indication: ILL-DEFINED DISORDER
     Route: 065
     Dates: start: 20031201, end: 20031201
  3. PREVACID [Concomitant]
     Indication: NAUSEA
  4. ZANTAC [Concomitant]
     Indication: NAUSEA

REACTIONS (5)
  - DRUG WITHDRAWAL SYNDROME [None]
  - HYPOAESTHESIA [None]
  - PARAESTHESIA [None]
  - VOMITING [None]
  - WEIGHT DECREASED [None]
